FAERS Safety Report 15795870 (Version 2)
Quarter: 2019Q1

REPORT INFORMATION
  Report Type: Report from Study
  Country: None (occurrence: US)
  Receive Date: 20190107
  Receipt Date: 20190116
  Transmission Date: 20190417
  Serious: Yes (Other)
  Sender: FDA-Public Use
  Company Number: US-ABBVIE-18K-163-2583103-00

PATIENT
  Age: 71 Year
  Sex: Female
  Weight: 93.52 kg

DRUGS (3)
  1. LIPITOR [Concomitant]
     Active Substance: ATORVASTATIN CALCIUM
     Indication: BLOOD CHOLESTEROL INCREASED
  2. HUMIRA [Suspect]
     Active Substance: ADALIMUMAB
     Indication: HIDRADENITIS
     Route: 058
     Dates: start: 20180629, end: 20181212
  3. MOEXIPRIL [Concomitant]
     Active Substance: MOEXIPRIL HYDROCHLORIDE
     Indication: HYPERTENSION

REACTIONS (4)
  - Mobility decreased [Recovered/Resolved]
  - Red blood cell sedimentation rate increased [Unknown]
  - Lupus-like syndrome [Not Recovered/Not Resolved]
  - Muscle swelling [Recovered/Resolved]

NARRATIVE: CASE EVENT DATE: 201811
